FAERS Safety Report 24916866 (Version 1)
Quarter: 2025Q1

REPORT INFORMATION
  Report Type: Spontaneous
  Country: US (occurrence: None)
  Receive Date: 20250131
  Receipt Date: 20250131
  Transmission Date: 20250409
  Serious: Yes (Hospitalization)
  Sender: FDA-CTU
  Company Number: None

PATIENT
  Age: 76 Year
  Sex: Male
  Weight: 87.4 kg

DRUGS (1)
  1. TECARTUS [Suspect]
     Active Substance: BREXUCABTAGENE AUTOLEUCEL

REACTIONS (20)
  - Cytokine release syndrome [None]
  - Fatigue [None]
  - Nausea [None]
  - Malaise [None]
  - Myalgia [None]
  - Hypotension [None]
  - Oxygen saturation decreased [None]
  - Serum ferritin increased [None]
  - Hypertransaminasaemia [None]
  - Hyperbilirubinaemia [None]
  - Pancytopenia [None]
  - Prothrombin time prolonged [None]
  - International normalised ratio abnormal [None]
  - Oedema [None]
  - Hypoxia [None]
  - Immune effector cell-associated neurotoxicity syndrome [None]
  - Bradycardia [None]
  - Atrial fibrillation [None]
  - Seizure [None]
  - Delirium [None]

NARRATIVE: CASE EVENT DATE: 20241217
